FAERS Safety Report 6195558-9 (Version None)
Quarter: 2009Q2

REPORT INFORMATION
  Report Type: 
  Country: None (occurrence: None)
  Receive Date: 20090519
  Receipt Date: 20090511
  Transmission Date: 20091009
  Serious: Yes (Other)
  Sender: FDA-Public Use
  Company Number: PHHY2009JP09674

PATIENT
  Sex: Female
  Weight: 74 kg

DRUGS (16)
  1. DIOVAN T30230+TAB+HY [Suspect]
     Indication: HYPERTENSION
     Dosage: 40 MG, QD
     Route: 048
     Dates: start: 20071218, end: 20080107
  2. DIOVAN T30230+TAB+HY [Suspect]
     Dosage: 80 MG, QD
     Dates: start: 20080107, end: 20080516
  3. DIOVAN T30230+TAB+HY [Suspect]
     Dosage: 60 MG, BID
     Route: 048
     Dates: start: 20080516, end: 20080719
  4. DIOVAN T30230+TAB+HY [Suspect]
     Dosage: 80 MG, QD
     Route: 048
     Dates: start: 20080719
  5. NORVASC [Concomitant]
     Indication: HYPERTENSION
     Dosage: 5 MG, UNK
     Route: 048
     Dates: start: 20071119
  6. NORVASC [Concomitant]
     Dosage: 2.5 MG, UNK
     Route: 048
     Dates: end: 20080107
  7. ATELEC [Concomitant]
     Indication: HYPERTENSION
     Dosage: 5 MG, UNK
     Route: 048
     Dates: start: 20080107, end: 20080122
  8. CALBLOCK [Concomitant]
     Indication: HYPERTENSION
     Dosage: 8 MG, UNK
     Route: 048
     Dates: start: 20080719
  9. CALBLOCK [Concomitant]
     Dosage: 16 MG, UNK
     Route: 048
  10. SELBEX [Concomitant]
     Dosage: 1.5 G, UNK
     Route: 048
     Dates: start: 20071119
  11. CEROCRAL [Concomitant]
     Dosage: 60 MG, UNK
     Route: 048
     Dates: start: 20071119
  12. MEILAX [Concomitant]
     Dosage: 2 MG, UNK
     Route: 048
     Dates: start: 20071119
  13. LIPOVAS ^BANYU^ [Concomitant]
     Dosage: 5 MG, UNK
     Route: 048
     Dates: start: 20071119, end: 20080827
  14. PURSENNID                               /SCH/ [Concomitant]
     Dosage: 24 MG, UNK
     Route: 048
     Dates: start: 20071119
  15. KEISHIBUKURYOUGAN [Concomitant]
     Dosage: 2.5 G, UNK
     Route: 048
     Dates: start: 20080827
  16. CRESTOR [Concomitant]
     Dosage: 2.5 MG, UNK
     Route: 048
     Dates: start: 20080827

REACTIONS (2)
  - CALCULUS URINARY [None]
  - HYPERKALAEMIA [None]
